FAERS Safety Report 4826589-6 (Version None)
Quarter: 2005Q4

REPORT INFORMATION
  Report Type: 
  Country: None (occurrence: None)
  Receive Date: 20051014
  Receipt Date: 20050819
  Transmission Date: 20060501
  Serious: No
  Sender: FDA-Public Use
  Company Number: 2005SP002428

PATIENT
  Age: 65 Year
  Sex: Female

DRUGS (7)
  1. LUNESTA [Suspect]
     Indication: INSOMNIA
     Dosage: 2 MG; HS; ORAL
     Route: 048
     Dates: start: 20050801
  2. SYNTHROID [Concomitant]
  3. ARTHROTEC [Concomitant]
  4. TRAMADOL HCL [Concomitant]
  5. TYLENOL [Concomitant]
  6. FOSAMAX [Concomitant]
  7. PREVACID [Concomitant]

REACTIONS (1)
  - DEPRESSION [None]
